FAERS Safety Report 23308787 (Version 1)
Quarter: 2023Q4

REPORT INFORMATION
  Report Type: Spontaneous
  Country: US (occurrence: None)
  Receive Date: 20231217
  Receipt Date: 20231217
  Transmission Date: 20240110
  Serious: Yes (Other)
  Sender: FDA-Public Use
  Company Number: None

PATIENT
  Age: 74 Year
  Sex: Female
  Weight: 86.85 kg

DRUGS (1)
  1. BENZONATATE [Suspect]
     Active Substance: BENZONATATE
     Indication: Cough
     Dosage: OTHER QUANTITY : 1 CAPSULE(S);?FREQUENCY : EVERY 8 HOURS;?
     Route: 048
     Dates: start: 20231216, end: 20231217

REACTIONS (2)
  - Cough [None]
  - Dyspnoea [None]

NARRATIVE: CASE EVENT DATE: 20231216
